FAERS Safety Report 5877458-4 (Version None)
Quarter: 2008Q3

REPORT INFORMATION
  Report Type: 
  Country: None (occurrence: None)
  Receive Date: 20080909
  Receipt Date: 20080902
  Transmission Date: 20090109
  Serious: Yes (Hospitalization)
  Sender: FDA-Public Use
  Company Number: TPA2008A01121

PATIENT
  Age: 57 Year
  Sex: Female
  Weight: 65.7716 kg

DRUGS (17)
  1. ROZEREM [Suspect]
     Indication: INSOMNIA
     Dosage: 8 MG, HS, PER ORAL
     Route: 048
     Dates: start: 20070101
  2. VERAPAMIL [Concomitant]
  3. SALSALATE (SALSALATE) [Concomitant]
  4. PERPHENAZINE AND AMITRIPTYLINE HCL [Concomitant]
  5. BUSPIRONE HCL [Concomitant]
  6. KLONOPIN [Concomitant]
  7. METROCREAM (METRONIDAZONE) (CREAM) [Concomitant]
  8. LEVOTHYRXOINE (LEVOTHYROXINE) [Concomitant]
  9. CETIRIZINE HCL [Concomitant]
  10. OXYCONTIN [Concomitant]
  11. PERCOCET [Concomitant]
  12. THERAPEUTIC MULTIVITAMINS (CALCIUM PANTOTHENATE, VITAMINS NOS) [Concomitant]
  13. ZINC (ZINC) [Concomitant]
  14. VITAMIN D [Concomitant]
  15. ASCORBIC ACID [Concomitant]
  16. CALCIUM + D (ERGOCALCIFEROL, CALCIUM PHOSPHATE, CALCIUM SODIUM LACTATE [Concomitant]
  17. MAGNESIUM (MAGNESIUM) [Concomitant]

REACTIONS (3)
  - FOREIGN BODY TRAUMA [None]
  - GALLBLADDER DISORDER [None]
  - PANCREATITIS [None]
